FAERS Safety Report 6265212-3 (Version None)
Quarter: 2009Q3

REPORT INFORMATION
  Report Type: 
  Country: None (occurrence: None)
  Receive Date: 20090713
  Receipt Date: 20090701
  Transmission Date: 20100115
  Serious: Yes (Hospitalization)
  Sender: FDA-Public Use
  Company Number: ES-ROCHE-641257

PATIENT
  Age: 38 Year
  Sex: Female

DRUGS (2)
  1. XELODA [Suspect]
     Indication: BREAST CANCER
     Route: 048
     Dates: start: 20090201, end: 20090602
  2. TYVERB [Suspect]
     Indication: BREAST CANCER
     Route: 048
     Dates: start: 20090201, end: 20090602

REACTIONS (2)
  - HEPATITIS TOXIC [None]
  - INTERSTITIAL LUNG DISEASE [None]
